FAERS Safety Report 21760005 (Version 1)
Quarter: 2022Q4

REPORT INFORMATION
  Report Type: Spontaneous
  Country: CA (occurrence: CA)
  Receive Date: 20221221
  Receipt Date: 20221221
  Transmission Date: 20230113
  Serious: Yes (Other)
  Sender: FDA-Public Use
  Company Number: CA-JNJFOC-20221229929

PATIENT

DRUGS (4)
  1. IBUPROFEN [Suspect]
     Active Substance: IBUPROFEN
     Indication: Patent ductus arteriosus
     Dosage: THREE DOSES OF IBUPROFEN (20 MG/KG TOTAL)
     Route: 065
  2. IBUPROFEN [Suspect]
     Active Substance: IBUPROFEN
     Dosage: FOLLOWED BY 5 MG/KG EVERY 24 H FOR TWO DOSES
     Route: 065
  3. GENTAMICIN [Concomitant]
     Active Substance: GENTAMICIN
     Indication: Product used for unknown indication
     Dosage: 30/32 [94%] VS. 34/38 [89%] RESPECTIVELY
     Route: 042
  4. GENTAMICIN [Concomitant]
     Active Substance: GENTAMICIN
     Dosage: 34/38 (89%)
     Route: 065

REACTIONS (2)
  - Off label use [Unknown]
  - Acute kidney injury [Unknown]
